FAERS Safety Report 4753781-1 (Version None)
Quarter: 2005Q3

REPORT INFORMATION
  Report Type: 
  Country: None (occurrence: None)
  Receive Date: 20050823
  Receipt Date: 20050505
  Transmission Date: 20060218
  Serious: No
  Sender: FDA-Public Use
  Company Number: 214304

PATIENT
  Age: 52 Year
  Sex: Male

DRUGS (1)
  1. RAPRIVA (EFALIZUMAB) PWDR + SOLVENT, INJECTION SOLN, 125MG [Suspect]
     Indication: PSORIASIS
     Dosage: 1.1ML SUBCUTANEOUS
     Route: 058
     Dates: start: 20041201

REACTIONS (1)
  - WHITE BLOOD CELL COUNT INCREASED [None]
